FAERS Safety Report 15846495 (Version 1)
Quarter: 2019Q1

REPORT INFORMATION
  Report Type: Spontaneous
  Country: US (occurrence: US)
  Receive Date: 20190120
  Receipt Date: 20190120
  Transmission Date: 20190417
  Serious: No
  Sender: FDA-Public Use
  Company Number: US-JNJFOC-20190103137

PATIENT
  Age: 86 Year
  Sex: Male
  Weight: 80.29 kg

DRUGS (1)
  1. TYLENOL EXTRA STRENGTH [Suspect]
     Active Substance: ACETAMINOPHEN
     Indication: MUSCULOSKELETAL PAIN
     Route: 048
     Dates: start: 201812

REACTIONS (2)
  - Expired product administered [Unknown]
  - Herpes zoster [Unknown]

NARRATIVE: CASE EVENT DATE: 201812
